FAERS Safety Report 9538651 (Version 1)
Quarter: 2013Q3

REPORT INFORMATION
  Report Type: Spontaneous
  Country: US (occurrence: None)
  Receive Date: 20130917
  Receipt Date: 20130917
  Transmission Date: 20140515
  Serious: Yes (Other)
  Sender: FDA-Public Use
  Company Number: 2013-US-000222

PATIENT
  Sex: Female
  Weight: 73 kg

DRUGS (11)
  1. XYREM [Suspect]
     Indication: NARCOLEPSY
     Route: 048
     Dates: start: 20030507
  2. XYREM [Suspect]
     Indication: NARCOLEPSY
     Route: 048
     Dates: start: 20030507
  3. XYREM [Suspect]
     Route: 048
     Dates: start: 20030507
  4. RITALIN (METHYLEPHENIDATE HYDROCHLORIDE) [Concomitant]
  5. VICODIN (HYDROCODONE BITARTRATE, PARACETAMOL) [Concomitant]
  6. ATENOLOL (ATENOLOL) [Concomitant]
  7. LEVOTHYROXINE (LEVOTHYROXINE SODIUM) [Concomitant]
  8. CYMBALTA (DULOXETINE HYDROCHLORIDE) [Concomitant]
  9. ABILIFY (ARIPIPRAZOLE) [Concomitant]
  10. BACLOFEN (BACLOFEN) [Concomitant]
  11. GABAPENTIN (GABAPENTIN) [Concomitant]

REACTIONS (6)
  - Bipolar disorder [None]
  - Hypothyroidism [None]
  - Post-traumatic neck syndrome [None]
  - Hypertension [None]
  - Fall [None]
  - Oedema peripheral [None]
